FAERS Safety Report 6248902-8 (Version None)
Quarter: 2009Q2

REPORT INFORMATION
  Report Type: 
  Country: None (occurrence: None)
  Receive Date: 20090625
  Receipt Date: 20090609
  Transmission Date: 20091009
  Serious: No
  Sender: FDA-Public Use
  Company Number: 8047574

PATIENT
  Age: 56 Year
  Sex: Male
  Weight: 95.4 kg

DRUGS (3)
  1. KEPPRA [Suspect]
     Indication: CONVULSION
     Dosage: 500 MG 2/D PO
     Route: 048
     Dates: start: 20090608
  2. KEPPRA [Suspect]
     Indication: CONVULSION
     Dosage: 500 MG 2/D PO
     Route: 048
     Dates: start: 20070101, end: 20090608
  3. LAMICTAL [Concomitant]

REACTIONS (1)
  - CONVULSION [None]
